FAERS Safety Report 8787918 (Version 2)
Quarter: 2012Q4

REPORT INFORMATION
  Report Type: Report from Study
  Country: DE (occurrence: DE)
  Receive Date: 20120914
  Receipt Date: 20120919
  Transmission Date: 20130627
  Serious: Yes (Death)
  Sender: FDA-Public Use
  Company Number: DE-ROCHE-1121987

PATIENT
  Age: 76 Year
  Sex: Female
  Weight: 46 kg

DRUGS (9)
  1. LEFLUNOMID [Suspect]
     Indication: RHEUMATOID ARTHRITIS
     Route: 065
     Dates: end: 20120427
  2. PREDNISOLON [Concomitant]
     Indication: MUSCULOSKELETAL PAIN
     Route: 065
     Dates: start: 20080516, end: 20120806
  3. LYRICA [Concomitant]
     Indication: PAIN
     Route: 065
     Dates: end: 20120806
  4. PALLADON [Concomitant]
     Indication: PAIN
     Dosage: 8 - 4 - 8  mg, START DATE: 04/Apr
     Route: 065
     Dates: end: 20120806
  5. STANGYL [Concomitant]
     Indication: INSOMNIA
     Dosage: START DATE: 04/Apr
     Route: 065
     Dates: end: 20120806
  6. BONVIVA [Concomitant]
     Indication: OSTEOPOROSIS
     Dosage: START DATE: 04/Apr
     Route: 065
     Dates: end: 20120806
  7. MONO-EMBOLEX [Concomitant]
     Indication: THROMBOSIS PROPHYLAXIS
     Dosage: unit - iE
     Route: 065
     Dates: start: 20120622, end: 20120806
  8. MABTHERA [Suspect]
     Indication: RHEUMATOID ARTHRITIS
     Route: 042
     Dates: start: 20111109, end: 20111109
  9. MABTHERA [Suspect]
     Route: 042
     Dates: start: 20111123, end: 20111123

REACTIONS (1)
  - Death [Fatal]
